FAERS Safety Report 9227290 (Version 1)
Quarter: 2013Q2

REPORT INFORMATION
  Report Type: Spontaneous
  Country: AU (occurrence: None)
  Receive Date: 20130410
  Receipt Date: 20130410
  Transmission Date: 20140414
  Serious: Yes (Death)
  Sender: FDA-Public Use
  Company Number: 1665479

PATIENT
  Age: 32 Year
  Sex: Male

DRUGS (1)
  1. PHENYTOIN [Suspect]
     Indication: ALCOHOLIC SEIZURE

REACTIONS (9)
  - Drug reaction with eosinophilia and systemic symptoms [None]
  - Respiratory failure [None]
  - Hypotension [None]
  - Diarrhoea haemorrhagic [None]
  - Hepatitis [None]
  - Cytomegalovirus gastrointestinal infection [None]
  - Large intestinal ulcer [None]
  - Human herpesvirus 6 infection [None]
  - Gastrointestinal inflammation [None]
